FAERS Safety Report 4375823-8 (Version None)
Quarter: 2004Q2

REPORT INFORMATION
  Report Type: 
  Country: None (occurrence: None)
  Receive Date: 20040609
  Receipt Date: 20040609
  Transmission Date: 20050107
  Serious: Yes (Hospitalization, Other)
  Sender: FDA-Public Use
  Company Number: None

PATIENT
  Age: 55 Year
  Sex: Male

DRUGS (2)
  1. MORPHINE [Suspect]
  2. BACLOFEN [Suspect]

REACTIONS (1)
  - MULTIPLE DRUG OVERDOSE [None]
